FAERS Safety Report 13987291 (Version 2)
Quarter: 2017Q4

REPORT INFORMATION
  Report Type: Spontaneous
  Country: IT (occurrence: IT)
  Receive Date: 20170919
  Receipt Date: 20171013
  Transmission Date: 20180321
  Serious: Yes (Death, Hospitalization)
  Sender: FDA-Public Use
  Company Number: IT-MYLANLABS-2017M1057833

PATIENT
  Age: 80 Year
  Sex: Female

DRUGS (2)
  1. PAROXETINE. [Suspect]
     Active Substance: PAROXETINE
     Indication: DEPRESSION
  2. PAROXETINE. [Suspect]
     Active Substance: PAROXETINE
     Indication: PSYCHOTIC DISORDER
     Route: 065

REACTIONS (2)
  - Multiple organ dysfunction syndrome [Fatal]
  - Heat stroke [Fatal]
